FAERS Safety Report 21403515 (Version 1)
Quarter: 2022Q4

REPORT INFORMATION
  Report Type: Spontaneous
  Country: CN (occurrence: CN)
  Receive Date: 20221003
  Receipt Date: 20221003
  Transmission Date: 20230113
  Serious: Yes (Other)
  Sender: FDA-Public Use
  Company Number: CN-PFIZER INC-PV202200074917

PATIENT
  Age: 76 Year
  Sex: Female

DRUGS (5)
  1. EPIRUBICIN HYDROCHLORIDE [Suspect]
     Active Substance: EPIRUBICIN HYDROCHLORIDE
     Indication: Non-Hodgkin^s lymphoma
     Dosage: 90 MG, 1X/DAY
     Route: 041
     Dates: start: 20220912, end: 20220912
  2. CYCLOPHOSPHAMIDE [Suspect]
     Active Substance: CYCLOPHOSPHAMIDE
     Indication: Non-Hodgkin^s lymphoma
     Dosage: 1 G, 1X/DAY
     Route: 041
     Dates: start: 20220912, end: 20220912
  3. VINDESINE SULFATE [Suspect]
     Active Substance: VINDESINE SULFATE
     Indication: Non-Hodgkin^s lymphoma
     Dosage: 4 MG, 1X/DAY
     Route: 041
     Dates: start: 20220912, end: 20220912
  4. RITUXIMAB [Concomitant]
     Active Substance: RITUXIMAB
     Indication: Non-Hodgkin^s lymphoma
     Dosage: 600 MG, 1X/DAY
     Route: 041
     Dates: start: 20220912, end: 20220912
  5. DEXAMETHASONE [Concomitant]
     Active Substance: DEXAMETHASONE
     Indication: Non-Hodgkin^s lymphoma
     Dosage: 15 MG, CYCLIC (D1-5)

REACTIONS (4)
  - Gastrointestinal disorder [Recovering/Resolving]
  - Blood potassium decreased [Recovering/Resolving]
  - Nausea [Recovered/Resolved]
  - Vomiting [Recovered/Resolved]

NARRATIVE: CASE EVENT DATE: 20220901
